FAERS Safety Report 4415271-5 (Version None)
Quarter: 2004Q3

REPORT INFORMATION
  Report Type: 
  Country: None (occurrence: None)
  Receive Date: 20040729
  Receipt Date: 20040721
  Transmission Date: 20050211
  Serious: Yes (Death)
  Sender: FDA-Public Use
  Company Number: 2004-07-0992

PATIENT
  Sex: Female

DRUGS (2)
  1. TEMODAL [Suspect]
     Dosage: ORAL
     Route: 048
  2. CORTICOSTEROID NOS [Concomitant]

REACTIONS (1)
  - EMBOLISM [None]
